FAERS Safety Report 7773789-1 (Version None)
Quarter: 2011Q3

REPORT INFORMATION
  Report Type: 
  Country: None (occurrence: None)
  Receive Date: 20110923
  Receipt Date: 20110915
  Transmission Date: 20111222
  Serious: Yes (Death)
  Sender: FDA-Public Use
  Company Number: JP-CELGENEUS-087-21880-11091880

PATIENT
  Sex: Female

DRUGS (4)
  1. CYTARABINE [Concomitant]
     Dosage: 56 MILLIGRAM
     Route: 058
     Dates: start: 20110121, end: 20110203
  2. REVLIMID [Suspect]
     Dosage: 10 MILLIGRAM
     Route: 048
     Dates: start: 20110118, end: 20110121
  3. GOODMIN [Concomitant]
     Dosage: .25 MILLIGRAM
     Route: 048
     Dates: start: 20110118, end: 20110214
  4. MAGMITT [Concomitant]
     Dosage: 660 MILLIGRAM
     Route: 048
     Dates: start: 20110118, end: 20110214

REACTIONS (2)
  - MYELODYSPLASTIC SYNDROME TRANSFORMATION [None]
  - ACUTE MYELOID LEUKAEMIA [None]
